FAERS Safety Report 9718090 (Version 2)
Quarter: 2013Q4

REPORT INFORMATION
  Report Type: Spontaneous
  Country: US (occurrence: US)
  Receive Date: 20131125
  Receipt Date: 20131125
  Transmission Date: 20140711
  Serious: No
  Sender: FDA-Public Use
  Company Number: US-VIVUS-2013V1000171

PATIENT
  Sex: Male

DRUGS (1)
  1. QSYMIA [Suspect]
     Indication: WEIGHT DECREASED
     Route: 048

REACTIONS (10)
  - Fall [Recovered/Resolved]
  - Balance disorder [Unknown]
  - Dysuria [Recovered/Resolved]
  - Rib fracture [Recovered/Resolved]
  - Gait disturbance [Not Recovered/Not Resolved]
  - Tremor [Recovered/Resolved]
  - Deafness [Recovered/Resolved]
  - Malaise [Unknown]
  - Dizziness [Recovered/Resolved]
  - Headache [Recovered/Resolved]
